FAERS Safety Report 20437908 (Version 1)
Quarter: 2022Q1

REPORT INFORMATION
  Report Type: Spontaneous
  Country: US (occurrence: US)
  Receive Date: 20220207
  Receipt Date: 20220207
  Transmission Date: 20220424
  Serious: No
  Sender: FDA-Public Use
  Company Number: US-ALKERMES INC.-ALK-2022-000539

PATIENT
  Age: 19 Year
  Sex: Male
  Weight: 58.957 kg

DRUGS (1)
  1. VIVITROL [Suspect]
     Active Substance: NALTREXONE
     Indication: Drug dependence
     Dosage: 380 MILLIGRAM, QMO
     Route: 030
     Dates: start: 2021

REACTIONS (9)
  - Pain [Unknown]
  - Tremor [Unknown]
  - Aggression [Unknown]
  - Crying [Unknown]
  - Neglect of personal appearance [Unknown]
  - Withdrawal syndrome [Unknown]
  - Vomiting [Unknown]
  - Diarrhoea [Unknown]
  - Drug dependence [Unknown]

NARRATIVE: CASE EVENT DATE: 20220101
